FAERS Safety Report 16298639 (Version 1)
Quarter: 2019Q2

REPORT INFORMATION
  Report Type: Spontaneous
  Country: US (occurrence: US)
  Receive Date: 20190510
  Receipt Date: 20190510
  Transmission Date: 20190711
  Serious: No
  Sender: FDA-Public Use
  Company Number: US-CELGENEUS-USA-20190501674

PATIENT
  Sex: Female
  Weight: 122.58 kg

DRUGS (1)
  1. REVLIMID [Suspect]
     Active Substance: LENALIDOMIDE
     Indication: PLASMA CELL MYELOMA
     Dosage: 25 MILLIGRAM
     Route: 048
     Dates: start: 20181206

REACTIONS (4)
  - Nasopharyngitis [Unknown]
  - Chills [Unknown]
  - Vomiting [Unknown]
  - Stomatitis [Unknown]
